FAERS Safety Report 14499400 (Version 1)
Quarter: 2018Q1

REPORT INFORMATION
  Report Type: Spontaneous
  Country: US (occurrence: US)
  Receive Date: 20180206
  Receipt Date: 20180206
  Transmission Date: 20180509
  Serious: No
  Sender: FDA-Public Use
  Company Number: None

PATIENT
  Sex: Female

DRUGS (2)
  1. LATANOPROST. [Suspect]
     Active Substance: LATANOPROST
  2. TRAVATAN [Suspect]
     Active Substance: TRAVOPROST

REACTIONS (3)
  - Lacrimation increased [None]
  - Pruritus [None]
  - Burning sensation [None]
